FAERS Safety Report 8923281 (Version 3)
Quarter: 2013Q1

REPORT INFORMATION
  Report Type: Spontaneous
  Country: FR (occurrence: None)
  Receive Date: 20121115
  Receipt Date: 20121227
  Transmission Date: 20140127
  Serious: Yes (Other)
  Sender: FDA-Public Use
  Company Number: 2012100011

PATIENT
  Age: 48 Year
  Sex: Male

DRUGS (1)
  1. TALOXA [Suspect]
     Route: 048
     Dates: start: 201112

REACTIONS (8)
  - Dysarthria [None]
  - Asthenia [None]
  - Balance disorder [None]
  - Overdose [None]
  - Device difficult to use [None]
  - Product formulation issue [None]
  - Impaired work ability [None]
  - Drug level below therapeutic [None]
